FAERS Safety Report 4793859-X (Version None)
Quarter: 2005Q4

REPORT INFORMATION
  Report Type: 
  Country: None (occurrence: None)
  Receive Date: 20051006
  Receipt Date: 20050926
  Transmission Date: 20060501
  Serious: Yes (Death, Other)
  Sender: FDA-Public Use
  Company Number: 2005-09-1760

PATIENT
  Age: 62 Year
  Sex: Female

DRUGS (4)
  1. INTEGRILIN [Suspect]
     Dosage: SEE IMAGE
     Route: 042
  2. ANGIOMAX [Suspect]
     Dosage: 250 MG  INTRAVENOUS
     Route: 042
  3. PLAVIX [Suspect]
     Dosage: 75 MG ORAL
     Route: 048
  4. ASPIRIN [Suspect]
     Dosage: 81 MG ORAL
     Route: 048

REACTIONS (11)
  - CARDIOVASCULAR DISORDER [None]
  - CHEST PAIN [None]
  - DYSPNOEA [None]
  - FATIGUE [None]
  - HAEMOPTYSIS [None]
  - HAEMOTHORAX [None]
  - HYPOTENSION [None]
  - LUNG NEOPLASM [None]
  - NAUSEA [None]
  - OPERATIVE HAEMORRHAGE [None]
  - VOMITING [None]
